FAERS Safety Report 9921263 (Version 2)
Quarter: 2014Q1

REPORT INFORMATION
  Report Type: Spontaneous
  Country: CA (occurrence: CA)
  Receive Date: 20140225
  Receipt Date: 20140305
  Transmission Date: 20141002
  Serious: Yes (Hospitalization)
  Sender: FDA-Public Use
  Company Number: CA-AMGEN-CANSP2014012628

PATIENT
  Age: 78 Year
  Sex: Male

DRUGS (19)
  1. ENBREL [Suspect]
     Indication: RHEUMATOID ARTHRITIS
     Dosage: 50 MG, UNK
     Route: 065
     Dates: start: 20131119
  2. TYLENOL                            /00020001/ [Concomitant]
     Dosage: 500 MG (6 TABLETS), QD
  3. HYDROXYCHLOROQUINE [Concomitant]
     Dosage: UNK UNK, BID
  4. IRON [Concomitant]
     Dosage: UNK
     Route: 048
  5. IRON [Concomitant]
     Dosage: UNK
     Route: 048
  6. METHOTREXATE [Concomitant]
     Dosage: 8 TABLETS, QWK
  7. PREDNISONE                         /00044702/ [Concomitant]
     Dosage: 5 MG, QD
  8. DOCUSATE [Concomitant]
     Dosage: 8 CAPSULES, QD
  9. SENOKOT                            /00142201/ [Concomitant]
     Dosage: 3 AT BED TIME
  10. LYRICA [Concomitant]
     Dosage: 75 MG, BID
  11. CELEXA                             /00582602/ [Concomitant]
     Dosage: UNK
  12. ACTONEL [Concomitant]
     Dosage: UNK UNK, QWK
  13. VIT D [Concomitant]
     Dosage: 10000 UNIT, QWK
  14. FOLIC ACID [Concomitant]
     Dosage: UNK UNK, 2 TIMES/WK
  15. RATIO-FENTANYL [Concomitant]
     Dosage: 100 MUG, EVERY 2 DAYS
  16. ETODOLAC [Concomitant]
     Dosage: UNK
  17. VITAMIN B12                        /00056201/ [Concomitant]
     Dosage: UNK
  18. OMEPRAZOLE [Concomitant]
     Dosage: 20 MG, QD
  19. CALCITE                            /00751520/ [Concomitant]
     Dosage: 500 MG, QD

REACTIONS (8)
  - Protein total decreased [Not Recovered/Not Resolved]
  - Haemoglobin decreased [Not Recovered/Not Resolved]
  - Gait disturbance [Not Recovered/Not Resolved]
  - Pain in extremity [Not Recovered/Not Resolved]
  - Arthralgia [Not Recovered/Not Resolved]
  - Aspiration joint [Not Recovered/Not Resolved]
  - Joint injection [Not Recovered/Not Resolved]
  - Drug ineffective [Not Recovered/Not Resolved]
